FAERS Safety Report 18838388 (Version 1)
Quarter: 2021Q1

REPORT INFORMATION
  Report Type: Spontaneous
  Country: US (occurrence: US)
  Receive Date: 20210203
  Receipt Date: 20210203
  Transmission Date: 20210419
  Serious: No
  Sender: FDA-Public Use
  Company Number: US-ALLERGAN-2048624US

PATIENT
  Age: 70 Year
  Sex: Female

DRUGS (4)
  1. BOTOX COSMETIC [Suspect]
     Active Substance: ONABOTULINUMTOXINA
     Indication: SKIN WRINKLING
     Dosage: 58 UNITS, SINGLE
     Dates: start: 20201106, end: 20201106
  2. IMMUNE SYSTEM PROTEIN POWDER [Concomitant]
     Dosage: UNK
  3. DERMAL FILLERS [Concomitant]
  4. METICARE PROTEIN POWDER [Concomitant]
     Dosage: UNK

REACTIONS (4)
  - Therapeutic response decreased [Unknown]
  - Facial asymmetry [Unknown]
  - Eyelid ptosis [Recovering/Resolving]
  - Product complaint [Unknown]
